FAERS Safety Report 14357117 (Version 3)
Quarter: 2018Q1

REPORT INFORMATION
  Report Type: Spontaneous
  Country: US (occurrence: US)
  Receive Date: 20180105
  Receipt Date: 20180213
  Transmission Date: 20180509
  Serious: Yes (Hospitalization)
  Sender: FDA-Public Use
  Company Number: US-IMPAX LABORATORIES, INC-2017-IPXL-03870

PATIENT
  Age: 83 Year
  Sex: Male
  Weight: 109 kg

DRUGS (3)
  1. CARBIDOPA/LEVODOPA [Concomitant]
     Active Substance: CARBIDOPA\LEVODOPA
     Indication: PARKINSON^S DISEASE
     Dosage: UNK
     Route: 065
  2. RYTARY [Suspect]
     Active Substance: CARBIDOPA\LEVODOPA
     Dosage: 48.75/195MG, (TWELVE CAPSULES IN DIVIDED DOSES PER DAY)
     Route: 048
  3. RYTARY [Suspect]
     Active Substance: CARBIDOPA\LEVODOPA
     Indication: PARKINSON^S DISEASE
     Dosage: 48.75/195MG, (THREE CAPSULES IN DIVIDED DOSES PER DAY)
     Route: 048
     Dates: start: 2017

REACTIONS (4)
  - Tremor [Not Recovered/Not Resolved]
  - Refusal of treatment by patient [Unknown]
  - Abdominal discomfort [Recovered/Resolved]
  - Drug ineffective [Recovered/Resolved]

NARRATIVE: CASE EVENT DATE: 201709
